FAERS Safety Report 7814449-8 (Version None)
Quarter: 2011Q4

REPORT INFORMATION
  Report Type: 
  Country: None (occurrence: None)
  Receive Date: 20111014
  Receipt Date: 20110930
  Transmission Date: 20120403
  Serious: No
  Sender: FDA-Public Use
  Company Number: FR-ELI_LILLY_AND_COMPANY-FR201110000159

PATIENT
  Sex: Female

DRUGS (2)
  1. IMURAN [Concomitant]
     Dosage: 50MG/DAY
     Route: 048
  2. CYMBALTA [Suspect]
     Dosage: 30 MG, QD
     Route: 048

REACTIONS (1)
  - ALANINE AMINOTRANSFERASE INCREASED [None]
